FAERS Safety Report 9489932 (Version 1)
Quarter: 2013Q3

REPORT INFORMATION
  Report Type: Spontaneous
  Country: US (occurrence: US)
  Receive Date: 20130829
  Receipt Date: 20130829
  Transmission Date: 20140515
  Serious: Yes (Hospitalization, Other)
  Sender: FDA-Public Use
  Company Number: US-ACTELION-A-US2013-87524

PATIENT
  Age: 16 Month
  Sex: Female

DRUGS (3)
  1. TRACLEER [Suspect]
     Indication: PULMONARY ARTERIAL HYPERTENSION
     Dosage: 15.625 MG, BID
     Route: 048
     Dates: start: 20130326
  2. TRACLEER [Suspect]
     Dosage: 15.625 MG, UNK
     Route: 048
     Dates: start: 20130316, end: 20130325
  3. SILDENAFIL [Concomitant]

REACTIONS (1)
  - Lung disorder [Not Recovered/Not Resolved]
